FAERS Safety Report 12618791 (Version 1)
Quarter: 2016Q3

REPORT INFORMATION
  Report Type: Spontaneous
  Country: JP (occurrence: JP)
  Receive Date: 20160803
  Receipt Date: 20160803
  Transmission Date: 20161109
  Serious: Yes (Hospitalization, Other)
  Sender: FDA-Public Use
  Company Number: JP-TAIHO ONCOLOGY INC-JPTT160719

PATIENT
  Age: 64 Year
  Sex: Male

DRUGS (9)
  1. IRINOTECAN40 [Suspect]
     Active Substance: IRINOTECAN
     Indication: RECTAL CANCER METASTATIC
     Dosage: DETAILS NOT REPORTED
     Route: 041
  2. XELODA [Suspect]
     Active Substance: CAPECITABINE
     Indication: RECTAL CANCER METASTATIC
     Dosage: DETAILS NOT REPORTED
     Route: 048
  3. LONSURF [Suspect]
     Active Substance: TIPIRACIL HYDROCHLORIDE\TRIFLURIDINE
     Indication: RECTAL CANCER METASTATIC
     Dosage: DETAILS NOT REPORTED
     Route: 048
  4. OXALIPLATIN. [Suspect]
     Active Substance: OXALIPLATIN
     Indication: RECTAL CANCER METASTATIC
     Dosage: DETAILS NOT REPORTED
     Route: 041
  5. CISPLATIN. [Suspect]
     Active Substance: CISPLATIN
     Indication: RECTAL CANCER METASTATIC
     Dosage: DETAILS NOT REPORTED
     Route: 041
  6. 5-FU [Suspect]
     Active Substance: FLUOROURACIL
     Indication: RECTAL CANCER METASTATIC
     Dosage: DETAILS NOT REPORTED
     Route: 041
  7. VECTIBIX [Suspect]
     Active Substance: PANITUMUMAB
     Indication: RECTAL CANCER METASTATIC
     Dosage: DETAILS NOT REPORTED
     Route: 041
  8. TS-1 [Suspect]
     Active Substance: GIMERACIL\OTERACIL\TEGAFUR
     Indication: RECTAL CANCER METASTATIC
     Dosage: DETAILS NOT REPORTED
     Route: 048
  9. AVASTIN [Suspect]
     Active Substance: BEVACIZUMAB
     Indication: RECTAL CANCER METASTATIC
     Dosage: DETAILS NOT REPORTED
     Route: 041

REACTIONS (2)
  - Hepatic cirrhosis [Unknown]
  - Oesophageal varices haemorrhage [Unknown]
